FAERS Safety Report 6564726-6 (Version None)
Quarter: 2010Q1

REPORT INFORMATION
  Report Type: 
  Country: None (occurrence: None)
  Receive Date: 20100201
  Receipt Date: 20100128
  Transmission Date: 20100710
  Serious: Yes (Life-Threatening, Hospitalization)
  Sender: FDA-Public Use
  Company Number: FR-SANOFI-AVENTIS-2010SA005097

PATIENT
  Age: 64 Year
  Sex: Male

DRUGS (2)
  1. RIFADIN [Suspect]
     Indication: SEPTIC SHOCK
     Route: 042
     Dates: start: 20090115, end: 20090130
  2. ORBENIN CAP [Concomitant]
     Indication: SEPTIC SHOCK
     Route: 042
     Dates: start: 20090114

REACTIONS (3)
  - DERMATITIS EXFOLIATIVE [None]
  - DRUG RASH WITH EOSINOPHILIA AND SYSTEMIC SYMPTOMS [None]
  - EOSINOPHILIA [None]
